FAERS Safety Report 5108226-9 (Version None)
Quarter: 2006Q3

REPORT INFORMATION
  Report Type: 
  Country: None (occurrence: None)
  Receive Date: 20060914
  Receipt Date: 20060914
  Transmission Date: 20061208
  Serious: Yes (Other)
  Sender: FDA-Public Use
  Company Number: None

PATIENT
  Age: 61 Year
  Sex: Female
  Weight: 90.7194 kg

DRUGS (2)
  1. DIAZEPAM [Suspect]
     Indication: ANXIETY
     Dosage: 1 TID -PRN PO
     Route: 048
     Dates: start: 20040201, end: 20040301
  2. DIAZEPAM [Suspect]
     Indication: PAIN
     Dosage: 1 TID -PRN PO
     Route: 048
     Dates: start: 20040201, end: 20040301

REACTIONS (4)
  - HYPERHIDROSIS [None]
  - PHARMACEUTICAL PRODUCT COMPLAINT [None]
  - PRURITUS [None]
  - RASH [None]
